FAERS Safety Report 19896110 (Version 2)
Quarter: 2021Q4

REPORT INFORMATION
  Report Type: Spontaneous
  Country: CO (occurrence: CO)
  Receive Date: 20210929
  Receipt Date: 20211012
  Transmission Date: 20220303
  Serious: Yes (Other)
  Sender: FDA-Public Use
  Company Number: CO-COOPERSURGICAL, INC.-CO-2021CPS002847

PATIENT
  Age: 30 Year
  Sex: Female

DRUGS (2)
  1. PARAGARD T 380A [Suspect]
     Active Substance: COPPER
  2. LEVOTHYROXINE [Concomitant]
     Active Substance: LEVOTHYROXINE
     Indication: Hypothyroidism
     Dosage: 150 ?G, DAILY
     Route: 065

REACTIONS (9)
  - Calculus bladder [Unknown]
  - Female sterilisation [Unknown]
  - Device dislocation [Unknown]
  - Uterine perforation [Unknown]
  - Pregnancy with contraceptive device [Recovered/Resolved]
  - Urinary tract infection [Recovered/Resolved]
  - Medical device site calcification [Recovered/Resolved]
  - Device use issue [Unknown]
  - Drug ineffective [Unknown]
